FAERS Safety Report 7832046-5 (Version None)
Quarter: 2011Q4

REPORT INFORMATION
  Report Type: 
  Country: None (occurrence: None)
  Receive Date: 20111021
  Receipt Date: 20111007
  Transmission Date: 20120403
  Serious: Yes (Other)
  Sender: FDA-Public Use
  Company Number: AU-ROCHE-1004180

PATIENT
  Sex: Female

DRUGS (6)
  1. PLAVIX [Concomitant]
  2. LIPITOR [Concomitant]
  3. CARDIPRIN [Concomitant]
  4. DILTIAZEM HCL [Concomitant]
  5. MICARDIS [Concomitant]
  6. LUCENTIS [Suspect]
     Indication: MACULAR DEGENERATION

REACTIONS (3)
  - CONJUNCTIVAL HAEMORRHAGE [None]
  - INJECTION SITE PAIN [None]
  - RETINAL OEDEMA [None]
